FAERS Safety Report 17123402 (Version 1)
Quarter: 2019Q4

REPORT INFORMATION
  Report Type: Spontaneous
  Country: US (occurrence: US)
  Receive Date: 20191206
  Receipt Date: 20191206
  Transmission Date: 20200122
  Serious: No
  Sender: FDA-Public Use
  Company Number: US-ROCHE-2336492

PATIENT
  Age: 48 Year
  Sex: Female

DRUGS (1)
  1. OCREVUS [Suspect]
     Active Substance: OCRELIZUMAB
     Indication: MULTIPLE SCLEROSIS
     Dosage: MOST RECENT INFUSION WAS ON 10/APR/2019
     Route: 042

REACTIONS (3)
  - Nausea [Unknown]
  - Throat irritation [Unknown]
  - Flushing [Unknown]

NARRATIVE: CASE EVENT DATE: 20190410
